FAERS Safety Report 8399876 (Version 3)
Quarter: 2013Q1

REPORT INFORMATION
  Report Type: Spontaneous
  Country: HR (occurrence: HR)
  Receive Date: 20120210
  Receipt Date: 20130215
  Transmission Date: 20140127
  Serious: Yes (Hospitalization, Other)
  Sender: FDA-Public Use
  Company Number: HR-JNJFOC-20120203004

PATIENT
  Age: 29 Year
  Sex: Male

DRUGS (13)
  1. LEPONEX [Suspect]
     Indication: SCHIZOPHRENIA
     Dosage: 50 MG,50 MG,75 MG
     Route: 065
  2. LAMEPTIL [Suspect]
     Indication: PRODUCT USED FOR UNKNOWN INDICATION
     Dosage: 50 MG,0,50 MG
     Route: 065
  3. AKINETON [Suspect]
     Indication: PRODUCT USED FOR UNKNOWN INDICATION
     Dosage: TABLET 1-0-1
     Route: 065
  4. AKINETON [Suspect]
     Indication: PRODUCT USED FOR UNKNOWN INDICATION
     Dosage: 1,0,0 TABLET
     Route: 065
  5. APAURIN [Suspect]
     Indication: PRODUCT USED FOR UNKNOWN INDICATION
     Dosage: 3 X 10 MG
     Route: 065
  6. RISPERIDONE [Suspect]
     Indication: PRODUCT USED FOR UNKNOWN INDICATION
     Dosage: 0, 0, 2 MG
     Route: 048
  7. RISPERIDONE [Suspect]
     Indication: PRODUCT USED FOR UNKNOWN INDICATION
     Dosage: TABLET 1 MG, 3X1
     Route: 048
  8. RISPOLEPT CONSTA [Suspect]
     Indication: SCHIZOPHRENIA, PARANOID TYPE
     Route: 030
     Dates: start: 200805, end: 20081021
  9. RISPOLEPT CONSTA [Suspect]
     Indication: SCHIZOPHRENIA, PARANOID TYPE
     Route: 030
     Dates: start: 200805
  10. RISPOLEPT CONSTA [Suspect]
     Indication: SCHIZOPHRENIA, PARANOID TYPE
     Route: 030
     Dates: start: 20101108, end: 2011
  11. RISPOLEPT CONSTA [Suspect]
     Indication: SCHIZOPHRENIA, PARANOID TYPE
     Route: 030
     Dates: start: 20090807, end: 20101108
  12. RISPOLEPT CONSTA [Suspect]
     Indication: SCHIZOPHRENIA, PARANOID TYPE
     Route: 030
     Dates: start: 2011
  13. RISPOLEPT CONSTA [Suspect]
     Indication: SCHIZOPHRENIA, PARANOID TYPE
     Route: 030
     Dates: start: 20081021, end: 20090807

REACTIONS (3)
  - Psychotic disorder [Recovered/Resolved]
  - Psychomotor hyperactivity [Recovered/Resolved]
  - Treatment noncompliance [Recovered/Resolved]
